FAERS Safety Report 9559224 (Version 2)
Quarter: 2013Q4

REPORT INFORMATION
  Report Type: Spontaneous
  Country: US (occurrence: None)
  Receive Date: 20130925
  Receipt Date: 20131008
  Transmission Date: 20140711
  Serious: Yes (Death)
  Sender: FDA-Public Use
  Company Number: SYM-2013-10835

PATIENT
  Age: 41 Year
  Sex: Male

DRUGS (1)
  1. XENAZINE(TETRABENAZINE) ( TABLET) (TETRABENAZINE) [Suspect]
     Indication: CHOREA
     Route: 048
     Dates: end: 20130916

REACTIONS (1)
  - Death [None]
